FAERS Safety Report 6122109-7 (Version None)
Quarter: 2009Q1

REPORT INFORMATION
  Report Type: 
  Country: None (occurrence: None)
  Receive Date: 20090316
  Receipt Date: 20090316
  Transmission Date: 20090719
  Serious: Yes (Other)
  Sender: FDA-Public Use
  Company Number: None

PATIENT
  Sex: Male
  Weight: 10.4327 kg

DRUGS (1)
  1. TAMIFLU [Suspect]
     Dosage: 2.5 ML TWICE A DAY PO
     Route: 048
     Dates: start: 20090313, end: 20090315

REACTIONS (7)
  - ABNORMAL BEHAVIOUR [None]
  - CONFUSIONAL STATE [None]
  - DIARRHOEA [None]
  - FEAR [None]
  - HUNGER [None]
  - INSOMNIA [None]
  - SCREAMING [None]
